FAERS Safety Report 5899924-8 (Version None)
Quarter: 2008Q3

REPORT INFORMATION
  Report Type: 
  Country: None (occurrence: None)
  Receive Date: 20080925
  Receipt Date: 20080925
  Transmission Date: 20090109
  Serious: No
  Sender: FDA-Public Use
  Company Number: None

PATIENT
  Sex: Female
  Weight: 83.9154 kg

DRUGS (9)
  1. REMICADE [Suspect]
     Indication: RHEUMATOID ARTHRITIS
     Dosage: EVERY SIX WEEKS IV DRIP, LAST 4-5 YEARS
     Route: 041
  2. METHOTREXATE [Suspect]
     Indication: RHEUMATOID ARTHRITIS
     Dosage: 7.5 MG WEEKLY PO, LAST 4-5 YEARS
     Route: 048
  3. ASPIRIN [Concomitant]
  4. ENALAPRIL MALEATE [Concomitant]
  5. FUROSEMIDE [Concomitant]
  6. TRAZODONE HCL [Concomitant]
  7. GLIPIZIDE [Concomitant]
  8. INSULIN GLARGINE [Concomitant]
  9. METFORMIN HCL [Concomitant]

REACTIONS (1)
  - B-CELL LYMPHOMA [None]
